FAERS Safety Report 4346664-2 (Version None)
Quarter: 2004Q2

REPORT INFORMATION
  Report Type: 
  Country: None (occurrence: None)
  Receive Date: 20040426
  Receipt Date: 20011128
  Transmission Date: 20050107
  Serious: Yes (Life-Threatening, Hospitalization)
  Sender: FDA-Public Use
  Company Number: GB-ROCHE-302759

PATIENT
  Age: 51 Year
  Sex: Female
  Weight: 49.8 kg

DRUGS (12)
  1. DACLIZUMAB [Suspect]
     Route: 042
     Dates: start: 20011121, end: 20011121
  2. DACLIZUMAB [Suspect]
     Route: 042
     Dates: start: 20011205, end: 20020103
  3. DACLIZUMAB [Suspect]
     Route: 042
     Dates: end: 20020118
  4. MYCOPHENOLATE MOFETIL [Suspect]
     Route: 048
     Dates: start: 20011121
  5. MYCOPHENOLATE MOFETIL [Suspect]
     Route: 048
     Dates: start: 20020121
  6. PREDNISOLONE [Concomitant]
     Dates: start: 20011121
  7. NEORAL [Concomitant]
     Dates: start: 20011121
  8. OMEPRAZOLE [Concomitant]
     Indication: DRUG USE FOR UNKNOWN INDICATION
     Dates: start: 20011204
  9. SODIUM BICARBONATE [Concomitant]
     Indication: DRUG USE FOR UNKNOWN INDICATION
     Dates: start: 20011224
  10. ATORVASTATIN [Concomitant]
     Indication: DRUG USE FOR UNKNOWN INDICATION
     Dates: start: 20011204
  11. ALFACALCIDOL [Concomitant]
     Indication: DRUG USE FOR UNKNOWN INDICATION
     Dates: start: 20020417
  12. ASPIRIN [Concomitant]
     Indication: DRUG USE FOR UNKNOWN INDICATION
     Dates: start: 20020813

REACTIONS (8)
  - CYTOMEGALOVIRUS INFECTION [None]
  - HAEMORRHAGE [None]
  - HYPOTENSION [None]
  - INFLUENZA LIKE ILLNESS [None]
  - LETHARGY [None]
  - PNEUMONIA [None]
  - STAPHYLOCOCCAL INFECTION [None]
  - URINARY TRACT INFECTION [None]
